FAERS Safety Report 9781579 (Version 1)
Quarter: 2013Q4

REPORT INFORMATION
  Report Type: Spontaneous
  Country: US (occurrence: None)
  Receive Date: 20131223
  Receipt Date: 20131223
  Transmission Date: 20140711
  Serious: Yes (Life-Threatening, Hospitalization)
  Sender: FDA-Public Use
  Company Number: None

PATIENT
  Age: 85 Year
  Sex: Male
  Weight: 100 kg

DRUGS (1)
  1. CIPROFLOXACIN [Suspect]
     Indication: UROSEPSIS
     Route: 048
     Dates: start: 20110221, end: 20110222

REACTIONS (4)
  - Swollen tongue [None]
  - Local swelling [None]
  - Swelling face [None]
  - Sedation [None]
